FAERS Safety Report 8295006-9 (Version None)
Quarter: 2012Q2

REPORT INFORMATION
  Report Type: 
  Country: None (occurrence: None)
  Receive Date: 20120418
  Receipt Date: 20120411
  Transmission Date: 20120825
  Serious: Yes (Hospitalization, Other)
  Sender: FDA-Public Use
  Company Number: US-B.I. PHARMACEUTICALS,INC./RIDGEFIELD-2012-BP-06797BP

PATIENT
  Sex: Female

DRUGS (16)
  1. DIGOXIN [Concomitant]
     Indication: CARDIAC DISORDER
     Dosage: 125 MCG
     Route: 048
  2. SYNTHROID [Concomitant]
     Indication: THYROID DISORDER
     Dosage: 88 MCG
     Route: 048
  3. ZOCOR [Concomitant]
     Indication: BLOOD CHOLESTEROL INCREASED
     Dosage: 20 MG
     Route: 048
     Dates: start: 20120301
  4. GABAPENTIN [Concomitant]
     Indication: NEUROPATHY PERIPHERAL
     Dosage: 100 MG
     Route: 048
  5. PRADAXA [Suspect]
     Indication: ATRIAL FIBRILLATION
     Dosage: 150 MG
     Route: 048
     Dates: start: 20111101, end: 20111101
  6. ATENOLOL [Concomitant]
     Dosage: 25 MG
     Route: 048
     Dates: start: 20120404
  7. LEXAPRO [Concomitant]
     Indication: DEPRESSION
  8. MORPHINE SULFATE [Concomitant]
     Indication: ARTHRITIS
     Dosage: 15 MG
     Route: 048
  9. FOLIC ACID [Concomitant]
     Indication: PROPHYLAXIS
     Route: 048
  10. GABAPENTIN [Concomitant]
     Dosage: 200 MG
     Route: 048
  11. LIPITOR [Concomitant]
     Indication: BLOOD CHOLESTEROL INCREASED
     Dates: end: 20120201
  12. MORPHINE SULFATE [Concomitant]
     Indication: BACK DISORDER
  13. MULTI-VITAMIN [Concomitant]
     Indication: PROPHYLAXIS
     Route: 048
  14. PRADAXA [Suspect]
     Dosage: 150 MG
     Route: 048
     Dates: start: 20111101
  15. ATENOLOL [Concomitant]
     Dosage: 50 MG
     Route: 048
     Dates: end: 20120403
  16. TEMAZEPAM [Concomitant]
     Dosage: 15 MG
     Route: 048
     Dates: end: 20120301

REACTIONS (8)
  - HYPOTENSION [None]
  - HAEMORRHAGE [None]
  - ARTERIAL STENOSIS [None]
  - TRANSIENT ISCHAEMIC ATTACK [None]
  - LIP DISORDER [None]
  - BASAL CELL CARCINOMA [None]
  - CARDIAC FAILURE CONGESTIVE [None]
  - HEMIPARESIS [None]
